FAERS Safety Report 5138138-6 (Version None)
Quarter: 2006Q4

REPORT INFORMATION
  Report Type: 
  Country: None (occurrence: None)
  Receive Date: 20061030
  Receipt Date: 20060421
  Transmission Date: 20070319
  Serious: No
  Sender: FDA-Public Use
  Company Number: US-GLAXOSMITHKLINE-A0602809A

PATIENT
  Age: 57 Year
  Sex: Female

DRUGS (3)
  1. ADVAIR HFA [Suspect]
     Indication: DRUG USE FOR UNKNOWN INDICATION
     Dosage: 100MG AS REQUIRED
     Route: 055
     Dates: start: 20060401, end: 20060421
  2. ANTI-DEPRESSANT (UNKNOWN) [Concomitant]
  3. BLOOD PRESSURE MEDICATION [Concomitant]

REACTIONS (1)
  - POOR QUALITY DRUG ADMINISTERED [None]
